FAERS Safety Report 4301083-X (Version None)
Quarter: 2004Q1

REPORT INFORMATION
  Report Type: 
  Country: None (occurrence: None)
  Receive Date: 20040218
  Receipt Date: 20040202
  Transmission Date: 20041129
  Serious: Yes (Death, Life-Threatening)
  Sender: FDA-Public Use
  Company Number: USA040258166

PATIENT
  Age: 42 Year
  Sex: Male

DRUGS (1)
  1. XIGRIS [Suspect]
     Indication: SEPSIS
     Dosage: 24 UG/KG/HR/OTHER

REACTIONS (5)
  - BODY TEMPERATURE INCREASED [None]
  - HAEMATOCHEZIA [None]
  - HYPOTENSION [None]
  - MENTAL STATUS CHANGES [None]
  - PULMONARY EMBOLISM [None]
